FAERS Safety Report 22597119 (Version 1)
Quarter: 2023Q2

REPORT INFORMATION
  Report Type: Spontaneous
  Country: US (occurrence: US)
  Receive Date: 20230613
  Receipt Date: 20230613
  Transmission Date: 20230721
  Serious: No
  Sender: FDA-Public Use
  Company Number: US-Bion-011707

PATIENT
  Sex: Female

DRUGS (2)
  1. IBUPROFEN [Suspect]
     Active Substance: IBUPROFEN
     Indication: Migraine
     Dates: start: 20230604
  2. IBUPROFEN [Suspect]
     Active Substance: IBUPROFEN
     Indication: Migraine
     Dates: start: 20230605

REACTIONS (1)
  - Accidental overdose [Not Recovered/Not Resolved]
